FAERS Safety Report 9310468 (Version 3)
Quarter: 2013Q4

REPORT INFORMATION
  Report Type: Spontaneous
  Country: US (occurrence: US)
  Receive Date: 20130527
  Receipt Date: 20131227
  Transmission Date: 20140711
  Serious: Yes (Other)
  Sender: FDA-Public Use
  Company Number: US-PFIZER INC-2013159424

PATIENT
  Sex: Female

DRUGS (2)
  1. EFFEXOR XR [Suspect]
     Dosage: 300 MG, UNK
  2. XANAX [Suspect]
     Dosage: UNK

REACTIONS (4)
  - Colon cancer [Unknown]
  - Depression [Unknown]
  - Feeling abnormal [Unknown]
  - Pain in extremity [Unknown]
